FAERS Safety Report 14964598 (Version 3)
Quarter: 2018Q2

REPORT INFORMATION
  Report Type: Spontaneous
  Country: HU (occurrence: HU)
  Receive Date: 20180601
  Receipt Date: 20180629
  Transmission Date: 20180711
  Serious: Yes (Death, Other)
  Sender: FDA-Public Use
  Company Number: HU-JNJFOC-20180404242

PATIENT

DRUGS (2)
  1. IMBRUVICA [Suspect]
     Active Substance: IBRUTINIB
     Indication: CHRONIC LYMPHOCYTIC LEUKAEMIA
     Dosage: CLL: 420 MG??MCL: 560 MG
     Route: 048
  2. IMBRUVICA [Suspect]
     Active Substance: IBRUTINIB
     Indication: MANTLE CELL LYMPHOMA
     Dosage: CLL: 420 MG??MCL: 560 MG
     Route: 048

REACTIONS (11)
  - Gastrointestinal disorder [Unknown]
  - Lymphocytosis [Unknown]
  - Muscle spasms [Unknown]
  - Hepatic enzyme increased [Unknown]
  - Infection [Fatal]
  - Chronic lymphocytic leukaemia [Fatal]
  - Haemorrhage [Unknown]
  - Arrhythmia [Unknown]
  - Richter^s syndrome [Unknown]
  - Atrial fibrillation [Unknown]
  - Cutaneous symptom [Unknown]
